FAERS Safety Report 5018985-1 (Version None)
Quarter: 2006Q2

REPORT INFORMATION
  Report Type: 
  Country: None (occurrence: None)
  Receive Date: 20060606
  Receipt Date: 20060526
  Transmission Date: 20061013
  Serious: Yes (Other)
  Sender: FDA-Public Use
  Company Number: CA-GLAXOSMITHKLINE-A0607497A

PATIENT
  Age: 42 Year
  Weight: 72.7 kg

DRUGS (4)
  1. TELZIR [Suspect]
     Indication: DRUG USE FOR UNKNOWN INDICATION
     Route: 048
  2. TENOFOVIR [Concomitant]
     Indication: HIV INFECTION
     Dosage: 300U PER DAY
     Dates: start: 20060101
  3. LAMIVUDINE [Concomitant]
     Indication: HIV INFECTION
  4. LIPITOR [Concomitant]
     Dates: start: 20030101

REACTIONS (1)
  - LIPOHYPERTROPHY [None]
